FAERS Safety Report 9932666 (Version 1)
Quarter: 2014Q1

REPORT INFORMATION
  Report Type: Spontaneous
  Country: US (occurrence: US)
  Receive Date: 20140228
  Receipt Date: 20140228
  Transmission Date: 20141002
  Serious: No
  Sender: FDA-Public Use
  Company Number: US-ABBVIE-13P-163-1065798-00

PATIENT
  Age: 56 Year
  Sex: Male
  Weight: 81.72 kg

DRUGS (8)
  1. ANDROGEL [Suspect]
     Indication: BLOOD TESTOSTERONE DECREASED
     Dosage: ONE PACKET
     Dates: start: 201205, end: 201211
  2. ANDROGEL [Suspect]
     Dosage: TWO 5 GM PACKETS
     Dates: start: 201211, end: 20130313
  3. WELBUTRIN [Concomitant]
     Indication: ANXIETY
  4. LEVOTHYROXINE [Concomitant]
     Indication: HYPOTHYROIDISM
  5. NEXIUM [Concomitant]
     Indication: GASTROOESOPHAGEAL REFLUX DISEASE
  6. IBUPROFEN [Concomitant]
     Indication: BACK PAIN
  7. CARISOPRODOL [Concomitant]
     Indication: BACK PAIN
  8. VIAGRA [Concomitant]
     Indication: ERECTILE DYSFUNCTION

REACTIONS (3)
  - Hypercoagulation [Not Recovered/Not Resolved]
  - Hypertension [Not Recovered/Not Resolved]
  - Epistaxis [Recovering/Resolving]
